FAERS Safety Report 8187292-0 (Version None)
Quarter: 2012Q1

REPORT INFORMATION
  Report Type: 
  Country: None (occurrence: None)
  Receive Date: 20120306
  Receipt Date: 20120227
  Transmission Date: 20120608
  Serious: Yes (Death, Other)
  Sender: FDA-Public Use
  Company Number: US-JNJFOC-20111102687

PATIENT
  Sex: Male
  Weight: 78.2 kg

DRUGS (16)
  1. REMICADE [Suspect]
     Route: 042
     Dates: start: 20070101
  2. IMURAN [Suspect]
     Indication: COLITIS ULCERATIVE
     Dates: start: 20060301
  3. A MULTIVITAMIN [Concomitant]
  4. IMODIUM [Concomitant]
  5. GLYBURIDE [Concomitant]
     Indication: DIABETES MELLITUS
  6. BYETTA [Concomitant]
     Indication: DIABETES MELLITUS
  7. REMICADE [Suspect]
     Indication: COLITIS ULCERATIVE
     Route: 042
     Dates: end: 20111005
  8. PROBIOTIC [Concomitant]
  9. VITAMIN B-12 [Concomitant]
     Indication: VITAMIN B12 DEFICIENCY
  10. APRISO [Concomitant]
     Indication: COLITIS ULCERATIVE
  11. PREDNISONE TAB [Concomitant]
  12. GLUCOPHAGE [Concomitant]
     Indication: DIABETES MELLITUS
  13. SIMVASTATIN [Concomitant]
     Indication: BLOOD CHOLESTEROL
  14. ALL OTHER THERAPEUTIC DRUG [Concomitant]
     Indication: COLITIS
  15. CARAFATE [Concomitant]
     Indication: ULCER
  16. VALIUM [Concomitant]

REACTIONS (4)
  - METASTASES TO LIVER [None]
  - WEIGHT DECREASED [None]
  - LUNG CANCER METASTATIC [None]
  - DIARRHOEA [None]
